FAERS Safety Report 20957400 (Version 1)
Quarter: 2022Q2

REPORT INFORMATION
  Report Type: Report from Study
  Country: US (occurrence: US)
  Receive Date: 20220614
  Receipt Date: 20220614
  Transmission Date: 20220721
  Serious: Yes (Death, Hospitalization)
  Sender: FDA-Public Use
  Company Number: US-HLS-202200506

PATIENT
  Age: 68 Year

DRUGS (1)
  1. CLOZAPINE [Suspect]
     Active Substance: CLOZAPINE
     Route: 048

REACTIONS (2)
  - Neutrophil count increased [Unknown]
  - Neoplasm malignant [Fatal]

NARRATIVE: CASE EVENT DATE: 20220119
